FAERS Safety Report 8020918-0 (Version None)
Quarter: 2011Q4

REPORT INFORMATION
  Report Type: 
  Country: None (occurrence: None)
  Receive Date: 20111229
  Receipt Date: 20111229
  Transmission Date: 20120403
  Serious: Yes (Life-Threatening, Other)
  Sender: FDA-Public Use
  Company Number: None

PATIENT
  Age: 54 Year
  Sex: Female
  Weight: 63.5036 kg

DRUGS (1)
  1. PLAVIX [Suspect]
     Indication: CEREBROVASCULAR ACCIDENT PROPHYLAXIS
     Dosage: 75 MG QD P.O.
     Route: 048
     Dates: start: 20111018, end: 20111107

REACTIONS (12)
  - URINARY TRACT INFECTION [None]
  - ACUTE RESPIRATORY DISTRESS SYNDROME [None]
  - WHITE BLOOD CELL COUNT INCREASED [None]
  - ABDOMINAL PAIN UPPER [None]
  - MUSCULOSKELETAL CHEST PAIN [None]
  - LIPASE INCREASED [None]
  - SYNCOPE [None]
  - BLOOD POTASSIUM DECREASED [None]
  - MUSCULOSKELETAL PAIN [None]
  - HYPERSENSITIVITY [None]
  - CHEST PAIN [None]
  - UNEVALUABLE EVENT [None]
